APPROVED DRUG PRODUCT: VIIBRYD
Active Ingredient: VILAZODONE HYDROCHLORIDE
Strength: 40MG
Dosage Form/Route: TABLET;ORAL
Application: N022567 | Product #003 | TE Code: AB
Applicant: ABBVIE INC
Approved: Jan 21, 2011 | RLD: Yes | RS: No | Type: RX